FAERS Safety Report 5906031-4 (Version None)
Quarter: 2008Q4

REPORT INFORMATION
  Report Type: 
  Country: None (occurrence: None)
  Receive Date: 20081002
  Receipt Date: 20080926
  Transmission Date: 20090506
  Serious: Yes (Other)
  Sender: FDA-Public Use
  Company Number: BR-ASTRAZENECA-2008UW20792

PATIENT
  Sex: Female
  Weight: 60 kg

DRUGS (4)
  1. ARIMIDEX [Suspect]
     Indication: BREAST CANCER
     Route: 048
     Dates: start: 20071001
  2. SODIUM ALENDRONATE [Concomitant]
  3. SERTRALINE [Concomitant]
     Indication: DEPRESSION
     Route: 048
  4. APRAZ [Concomitant]
     Indication: INSOMNIA

REACTIONS (2)
  - MEMORY IMPAIRMENT [None]
  - STRESS [None]
